FAERS Safety Report 9631459 (Version 1)
Quarter: 2013Q4

REPORT INFORMATION
  Report Type: Spontaneous
  Country: US (occurrence: US)
  Receive Date: 20131018
  Receipt Date: 20131018
  Transmission Date: 20140711
  Serious: No
  Sender: FDA-Public Use
  Company Number: US-009507513-1310USA007199

PATIENT
  Age: 50 Year
  Sex: Female

DRUGS (3)
  1. CLARITIN LIQUIGELS [Suspect]
     Indication: HYPERSENSITIVITY
     Dosage: UNK, UNKNOWN
     Route: 048
  2. CLARITIN LIQUIGELS [Suspect]
     Indication: SNEEZING
  3. CLARITIN LIQUIGELS [Suspect]
     Indication: EYE PRURITUS

REACTIONS (2)
  - Somnolence [Unknown]
  - Drug effect increased [Unknown]
